FAERS Safety Report 9407109 (Version 1)
Quarter: 2013Q3

REPORT INFORMATION
  Report Type: Report from Study
  Country: DE (occurrence: DE)
  Receive Date: 20130718
  Receipt Date: 20130718
  Transmission Date: 20140515
  Serious: Yes (Life-Threatening, Hospitalization)
  Sender: FDA-Public Use
  Company Number: DE-ASTELLAS-2013EU001155

PATIENT
  Sex: Male
  Weight: 106 kg

DRUGS (2)
  1. ENZALUTAMIDE [Suspect]
     Indication: PROSTATE CANCER
     Dosage: 160 MG, UID/QD
     Route: 048
     Dates: start: 201301
  2. MELPERON [Suspect]
     Dosage: UNK
     Route: 065

REACTIONS (5)
  - Atrioventricular block [Recovered/Resolved]
  - Atrial flutter [Unknown]
  - Infection [Unknown]
  - Cardiac failure [Unknown]
  - General physical health deterioration [Recovering/Resolving]
